FAERS Safety Report 19311065 (Version 1)
Quarter: 2021Q2

REPORT INFORMATION
  Report Type: Spontaneous
  Country: FR (occurrence: FR)
  Receive Date: 20210526
  Receipt Date: 20210526
  Transmission Date: 20210717
  Serious: Yes (Other)
  Sender: FDA-Public Use
  Company Number: FR-AUROBINDO-AUR-APL-2021-020999

PATIENT
  Age: 67 Year
  Sex: Male

DRUGS (2)
  1. DURVALUMAB. [Concomitant]
     Active Substance: DURVALUMAB
     Indication: LUNG CANCER METASTATIC
     Dosage: 900 MILLIGRAM
     Route: 042
  2. TENOFOVIR DISOPROXIL [Suspect]
     Active Substance: TENOFOVIR DISOPROXIL
     Indication: HEPATITIS B REACTIVATION
     Dosage: 245 MILLIGRAM, ONCE A DAY
     Route: 065

REACTIONS (1)
  - Drug ineffective [Unknown]
